FAERS Safety Report 16607810 (Version 1)
Quarter: 2019Q3

REPORT INFORMATION
  Report Type: Spontaneous
  Country: IT (occurrence: IT)
  Receive Date: 20190722
  Receipt Date: 20190722
  Transmission Date: 20191004
  Serious: Yes (Death)
  Sender: FDA-Public Use
  Company Number: IT-SA-2019SA194633

PATIENT
  Age: 91 Year
  Sex: Male

DRUGS (5)
  1. OMNIC [Concomitant]
     Active Substance: TAMSULOSIN HYDROCHLORIDE
     Indication: BENIGN PROSTATIC HYPERPLASIA
     Dosage: 1 DF
     Route: 048
     Dates: start: 20170203, end: 20190608
  2. OMEPRAZOLE. [Concomitant]
     Active Substance: OMEPRAZOLE
     Dosage: UNK
     Dates: start: 20180822, end: 20190608
  3. LASIX [Concomitant]
     Active Substance: FUROSEMIDE
     Indication: HYPERTENSION
     Dosage: 3 DF
     Route: 048
     Dates: start: 20170207, end: 20190608
  4. PLAVIX [Suspect]
     Active Substance: CLOPIDOGREL BISULFATE
     Indication: THROMBOSIS PROPHYLAXIS
     Dosage: 1 DF, QD
     Route: 048
     Dates: start: 20170203, end: 20190608
  5. ZYLORIC [Concomitant]
     Active Substance: ALLOPURINOL
     Indication: HYPERURICAEMIA
     Dosage: 150 MG
     Route: 048
     Dates: start: 20170203, end: 20190608

REACTIONS (6)
  - Melaena [Fatal]
  - Epistaxis [Fatal]
  - Anaemia [Fatal]
  - Asthenia [Fatal]
  - Hypotension [Fatal]
  - Haematemesis [Fatal]

NARRATIVE: CASE EVENT DATE: 20190608
